FAERS Safety Report 12258323 (Version 1)
Quarter: 2016Q2

REPORT INFORMATION
  Report Type: Spontaneous
  Country: CA (occurrence: CA)
  Receive Date: 20160412
  Receipt Date: 20160412
  Transmission Date: 20160815
  Serious: Yes (Life-Threatening)
  Sender: FDA-Public Use
  Company Number: CA-GE HEALTHCARE MEDICAL DIAGNOSTICS-OMPQ-PR-1604S-0485

PATIENT
  Age: 75 Year
  Sex: Female

DRUGS (9)
  1. IRBESARTAN. [Concomitant]
     Active Substance: IRBESARTAN
  2. LORAZEPAM. [Concomitant]
     Active Substance: LORAZEPAM
  3. SALBUTAMOL [Concomitant]
     Active Substance: ALBUTEROL
  4. ROSUVASTATIN. [Concomitant]
     Active Substance: ROSUVASTATIN
  5. HUMIRA [Concomitant]
     Active Substance: ADALIMUMAB
  6. ESOMEPRAZOLE [Concomitant]
     Active Substance: ESOMEPRAZOLE
  7. VENLAFAXINE [Concomitant]
     Active Substance: VENLAFAXINE HYDROCHLORIDE
  8. OMNIPAQUE [Suspect]
     Active Substance: IOHEXOL
     Indication: PRODUCT USED FOR UNKNOWN INDICATION
     Route: 042
  9. OMNIPAQUE [Suspect]
     Active Substance: IOHEXOL
     Indication: DIAGNOSTIC PROCEDURE

REACTIONS (9)
  - Circulatory collapse [Recovering/Resolving]
  - Diarrhoea [Recovering/Resolving]
  - Rash erythematous [Recovering/Resolving]
  - Nausea [Recovering/Resolving]
  - Anal incontinence [Recovering/Resolving]
  - Unresponsive to stimuli [Recovering/Resolving]
  - Respiratory depression [Recovering/Resolving]
  - Anaphylactic reaction [Recovering/Resolving]
  - Heart rate decreased [Recovering/Resolving]
